FAERS Safety Report 10283129 (Version 2)
Quarter: 2014Q3

REPORT INFORMATION
  Report Type: Spontaneous
  Country: US (occurrence: US)
  Receive Date: 20140708
  Receipt Date: 20140708
  Transmission Date: 20150326
  Serious: Yes (Hospitalization)
  Sender: FDA-Public Use
  Company Number: US-AMGEN-USASP2014037567

PATIENT
  Age: 79 Year
  Sex: Female
  Weight: 96.6 kg

DRUGS (1)
  1. PROLIA [Suspect]
     Active Substance: DENOSUMAB
     Indication: OSTEOPOROSIS POSTMENOPAUSAL
     Dosage: 60 MG, UNK
     Route: 065
     Dates: start: 20131216, end: 20140504

REACTIONS (1)
  - Groin pain [Recovered/Resolved]

NARRATIVE: CASE EVENT DATE: 20140506
